FAERS Safety Report 7563233-1 (Version None)
Quarter: 2011Q2

REPORT INFORMATION
  Report Type: 
  Country: None (occurrence: None)
  Receive Date: 20110620
  Receipt Date: 20110620
  Transmission Date: 20111010
  Serious: Yes (Other)
  Sender: FDA-Public Use
  Company Number: None

PATIENT
  Age: 62 Year
  Sex: Female
  Weight: 63.5036 kg

DRUGS (1)
  1. SIMVASTATIN [Suspect]
     Indication: BLOOD CHOLESTEROL
     Dosage: ONE DAILY PO
     Route: 048
     Dates: start: 20080310, end: 20110615

REACTIONS (5)
  - UNEVALUABLE EVENT [None]
  - PAIN IN EXTREMITY [None]
  - MYALGIA [None]
  - MUSCLE SPASMS [None]
  - MIDDLE INSOMNIA [None]
